FAERS Safety Report 7658000 (Version 3)
Quarter: 2012Q4

REPORT INFORMATION
  Report Type: 
  Country: CZ (occurrence: CZ)
  Receive Date: 20101105
  Receipt Date: 20121114
  Transmission Date: 20130627
  Serious: Yes (Other)
  Sender: FDA-Public Use
  Company Number: CZ-PFIZER INC-2010135929

PATIENT
  Age: 12 Year
  Sex: Male

DRUGS (5)
  1. DOXORUBICIN HCL [Suspect]
     Indication: ACUTE LYMPHOBLASTIC LEUKEMIA
  2. METHOTREXATE SODIUM [Suspect]
     Indication: ACUTE LYMPHOBLASTIC LEUKEMIA
  3. VINCRISTINE SULFATE [Suspect]
     Indication: ACUTE LYMPHOBLASTIC LEUKEMIA
  4. DEXAMETHASONE [Suspect]
     Indication: ACUTE LYMPHOBLASTIC LEUKEMIA
  5. ASPARAGINASE [Suspect]
     Indication: ACUTE LYMPHOBLASTIC LEUKEMIA

REACTIONS (1)
  - Leukoencephalopathy [Unknown]
